FAERS Safety Report 9391670 (Version 2)
Quarter: 2013Q3

REPORT INFORMATION
  Report Type: Spontaneous
  Country: US (occurrence: US)
  Receive Date: 20130709
  Receipt Date: 20130730
  Transmission Date: 20140515
  Serious: Yes (Death)
  Sender: FDA-Public Use
  Company Number: US-GLAXOSMITHKLINE-A1031431A

PATIENT
  Age: 74 Year
  Sex: Female
  Weight: 69.5 kg

DRUGS (3)
  1. TYKERB [Suspect]
     Indication: METASTASES TO CENTRAL NERVOUS SYSTEM
     Dosage: 1250MG PER DAY
     Route: 048
     Dates: start: 20111022, end: 20130416
  2. LEVOTHYROXINE [Concomitant]
  3. PREDNISONE [Concomitant]

REACTIONS (1)
  - Metastases to central nervous system [Fatal]
